FAERS Safety Report 13109587 (Version 1)
Quarter: 2017Q1

REPORT INFORMATION
  Report Type: Spontaneous
  Country: US (occurrence: US)
  Receive Date: 20170112
  Receipt Date: 20170112
  Transmission Date: 20170428
  Serious: Yes (Other)
  Sender: FDA-Public Use
  Company Number: US-MALLINCKRODT-T201606868

PATIENT
  Age: 53 Year
  Sex: Female
  Weight: 47 kg

DRUGS (5)
  1. MORPHINE IMMEDIATE RELEASE (ROXANE) [Concomitant]
     Dosage: 30 MG, QD
     Route: 048
  2. KLONOPIN [Concomitant]
     Active Substance: CLONAZEPAM
     Dosage: UNK
  3. FENTANYL TRANSDERMAL SYSTEM [Suspect]
     Active Substance: FENTANYL
     Dosage: 75MCG/HR, Q72HR
     Route: 062
     Dates: start: 2014
  4. MORPHINE IMMEDIATE RELEASE (ROXANE) [Concomitant]
     Indication: BREAKTHROUGH PAIN
     Dosage: 30 MG, BID
     Route: 048
  5. FENTANYL TRANSDERMAL SYSTEM [Suspect]
     Active Substance: FENTANYL
     Indication: NEUROPATHY PERIPHERAL
     Dosage: 75MCG/HR, Q72HR
     Route: 062
     Dates: start: 2014

REACTIONS (6)
  - Product adhesion issue [Not Recovered/Not Resolved]
  - Lacunar stroke [Not Recovered/Not Resolved]
  - Drug withdrawal syndrome [Not Recovered/Not Resolved]
  - Drug effect decreased [Not Recovered/Not Resolved]
  - Wrong technique in product usage process [Not Recovered/Not Resolved]
  - Incorrect drug administration duration [Not Recovered/Not Resolved]

NARRATIVE: CASE EVENT DATE: 201612
